FAERS Safety Report 9902809 (Version 3)
Quarter: 2014Q1

REPORT INFORMATION
  Report Type: Spontaneous
  Country: US (occurrence: US)
  Receive Date: 20140217
  Receipt Date: 20140331
  Transmission Date: 20141002
  Serious: Yes (Death, Hospitalization)
  Sender: FDA-Public Use
  Company Number: US-BAXTER-2014BAX007378

PATIENT
  Age: 83 Year
  Sex: Female
  Weight: 50 kg

DRUGS (6)
  1. DIANEAL PD2 [Suspect]
     Indication: PERITONEAL DIALYSIS
     Route: 033
     Dates: start: 20100419, end: 201402
  2. DIANEAL PD2 [Suspect]
     Indication: RENAL FAILURE CHRONIC
  3. DIANEAL PD2 [Suspect]
     Indication: PERITONEAL DIALYSIS
     Route: 033
     Dates: end: 201402
  4. DIANEAL PD2 [Suspect]
     Indication: RENAL FAILURE CHRONIC
  5. EXTRANEAL [Suspect]
     Indication: PERITONEAL DIALYSIS
     Route: 033
     Dates: start: 20100419, end: 201402
  6. EXTRANEAL [Suspect]
     Indication: RENAL FAILURE CHRONIC

REACTIONS (2)
  - Death [Fatal]
  - Sepsis [Not Recovered/Not Resolved]
